FAERS Safety Report 21229433 (Version 2)
Quarter: 2022Q3

REPORT INFORMATION
  Report Type: Spontaneous
  Country: PT (occurrence: PT)
  Receive Date: 20220818
  Receipt Date: 20220825
  Transmission Date: 20221026
  Serious: Yes (Disabling)
  Sender: FDA-Public Use
  Company Number: None

PATIENT
  Age: 23 Year
  Sex: Male
  Weight: 106 kg

DRUGS (13)
  1. TOPAMAX [Suspect]
     Active Substance: TOPIRAMATE
     Indication: Migraine prophylaxis
     Dosage: 1ST WEEK 1X AT DINNER, 2ND WEEK 1X BREAKFAST + 1X DINNER
     Route: 048
     Dates: start: 20220605, end: 20220622
  2. BILASTINE [Concomitant]
     Active Substance: BILASTINE
  3. TRAMADOL + PARACETAMOL MYLAN [Concomitant]
     Dosage: 37.5 MG + 325 MG
     Route: 048
  4. IBANDRONIC ACID [Concomitant]
     Active Substance: IBANDRONIC ACID
  5. ZOLMITRIPTAN [Concomitant]
     Active Substance: ZOLMITRIPTAN
  6. FOLIC ACID [Concomitant]
     Active Substance: FOLIC ACID
     Route: 048
  7. LISDEXAMFETAMINE DIMESYLATE [Concomitant]
     Active Substance: LISDEXAMFETAMINE DIMESYLATE
     Route: 048
  8. METHOTREXATE [Concomitant]
     Active Substance: METHOTREXATE
  9. PANTOPRAZOLE [Concomitant]
     Active Substance: PANTOPRAZOLE
  10. PARACETAMOL GENERIS [Concomitant]
     Route: 048
  11. DEFLAZACORT [Concomitant]
     Active Substance: DEFLAZACORT
     Route: 048
  12. COLCHICINE [Concomitant]
     Active Substance: COLCHICINE
     Route: 048
  13. CALCITAB D [Concomitant]
     Dosage: 1500 MG + 400 U.I
     Route: 048

REACTIONS (9)
  - Suicidal ideation [Unknown]
  - Mental impairment [Unknown]
  - Anxiety [Unknown]
  - Arthralgia [Unknown]
  - Memory impairment [Unknown]
  - Depression [Unknown]
  - Confusional state [Unknown]
  - Dizziness [Unknown]
  - Nausea [Unknown]

NARRATIVE: CASE EVENT DATE: 20220601
